FAERS Safety Report 6840152-7 (Version None)
Quarter: 2010Q3

REPORT INFORMATION
  Report Type: 
  Country: None (occurrence: None)
  Receive Date: 20100714
  Receipt Date: 20100708
  Transmission Date: 20110219
  Serious: Yes (Death, Life-Threatening)
  Sender: FDA-Public Use
  Company Number: JP-JNJFOC-20100702846

PATIENT
  Age: 7 Month
  Sex: Female

DRUGS (4)
  1. LEUSTATIN [Suspect]
     Indication: LANGERHANS' CELL HISTIOCYTOSIS
     Route: 042
  2. CYTARABINE [Concomitant]
     Route: 065
  3. CICLOSPORIN [Concomitant]
     Route: 065
  4. PREDNISOLONE [Concomitant]
     Route: 065

REACTIONS (4)
  - BONE MARROW FAILURE [None]
  - DISEASE PROGRESSION [None]
  - DRUG INEFFECTIVE [None]
  - INFECTION [None]
